FAERS Safety Report 6960735-3 (Version None)
Quarter: 2010Q3

REPORT INFORMATION
  Report Type: 
  Country: None (occurrence: None)
  Receive Date: 20100901
  Receipt Date: 20100823
  Transmission Date: 20110219
  Serious: Yes (Disabling)
  Sender: FDA-Public Use
  Company Number: AU-PFIZER INC-2010106160

PATIENT
  Age: 25 Year
  Sex: Female
  Weight: 68 kg

DRUGS (1)
  1. CHAMPIX [Suspect]
     Dosage: UNK MG, 1X/DAY
     Route: 048
     Dates: start: 20100514, end: 20100605

REACTIONS (6)
  - ANXIETY [None]
  - CRYING [None]
  - INSOMNIA [None]
  - SELF INJURIOUS BEHAVIOUR [None]
  - SUICIDAL IDEATION [None]
  - TREMOR [None]
